FAERS Safety Report 12527468 (Version 2)
Quarter: 2016Q3

REPORT INFORMATION
  Report Type: Report from Study
  Country: US (occurrence: US)
  Receive Date: 20160705
  Receipt Date: 20160719
  Transmission Date: 20161109
  Serious: Yes (Hospitalization)
  Sender: FDA-Public Use
  Company Number: US-AMGEN-USACT2016084070

PATIENT
  Age: 72 Year
  Sex: Male
  Weight: 95 kg

DRUGS (7)
  1. PEMBROLIZUMAB. [Suspect]
     Active Substance: PEMBROLIZUMAB
     Indication: MALIGNANT MELANOMA
     Dosage: 200 MG, UNK
     Route: 042
     Dates: start: 20160621
  2. SAVAYSA [Concomitant]
     Active Substance: EDOXABAN TOSYLATE
     Dosage: 1 UNK, UNK
     Route: 048
     Dates: start: 20160428
  3. ARMOUR THYROID [Concomitant]
     Active Substance: THYROID, PORCINE
     Dosage: 45 MG, UNK
     Route: 048
     Dates: start: 20151013
  4. LISINOPRIL. [Concomitant]
     Active Substance: LISINOPRIL
     Dosage: 5 MG, UNK
     Route: 048
     Dates: start: 20150512
  5. CARVEDILOL. [Concomitant]
     Active Substance: CARVEDILOL
     Dosage: 40 MG, UNK
     Route: 048
     Dates: start: 20150812
  6. CITALOPRAM [Concomitant]
     Active Substance: CITALOPRAM HYDROBROMIDE
     Dosage: 40 MG, UNK
     Route: 048
     Dates: start: 20150512
  7. TALIMOGENE LAHERPAREPVEC [Suspect]
     Active Substance: TALIMOGENE LAHERPAREPVEC
     Indication: MALIGNANT MELANOMA
     Dosage: UNK
     Route: 026
     Dates: start: 20160621

REACTIONS (1)
  - Bronchitis [Recovered/Resolved]

NARRATIVE: CASE EVENT DATE: 20160624
